FAERS Safety Report 9167994 (Version 2)
Quarter: 2013Q3

REPORT INFORMATION
  Report Type: Spontaneous
  Country: US (occurrence: None)
  Receive Date: 20130307
  Receipt Date: 20130904
  Transmission Date: 20140515
  Serious: Yes (Death, Hospitalization)
  Sender: FDA-Public Use
  Company Number: 2013034893

PATIENT
  Age: 50 Year
  Sex: Female

DRUGS (1)
  1. ZEMAIRA [Suspect]
     Dosage: NOT OTHERWISE SPECIFIED
     Route: 042
     Dates: start: 20130206, end: 20130206

REACTIONS (2)
  - Death [None]
  - Pneumonia [None]
